FAERS Safety Report 6566775-0 (Version None)
Quarter: 2010Q1

REPORT INFORMATION
  Report Type: 
  Country: None (occurrence: None)
  Receive Date: 20100202
  Receipt Date: 20100121
  Transmission Date: 20100710
  Serious: Yes (Hospitalization)
  Sender: FDA-Public Use
  Company Number: KR-ELI_LILLY_AND_COMPANY-KR200912002001

PATIENT
  Sex: Male

DRUGS (8)
  1. PEMETREXED [Suspect]
     Indication: NON-SMALL CELL LUNG CANCER
     Dosage: 850 MG, D1 CYCLICAL
     Route: 042
     Dates: start: 20080201
  2. FOLIC ACID [Concomitant]
     Indication: PROPHYLAXIS
     Dosage: 1 MG, DAILY (1/D) AS NEEDED
     Route: 048
     Dates: start: 20080125, end: 20080423
  3. VITAMIN B-12 [Concomitant]
     Indication: PROPHYLAXIS
     Dosage: 1 MG/2 ML, UNK
     Route: 030
     Dates: start: 20080125, end: 20080125
  4. DEXAMETHASONE [Concomitant]
     Indication: PROPHYLAXIS
     Dosage: 5 MG/1 ML, 2/D
     Route: 030
     Dates: start: 20080201, end: 20080201
  5. DEXAMETHASONE [Concomitant]
     Dosage: 5 MG/1 ML, 2/D
     Route: 030
     Dates: start: 20080222, end: 20080222
  6. DEXAMETHASONE [Concomitant]
     Dosage: 5 MG/1 ML, 2/D
     Route: 030
     Dates: start: 20080314, end: 20080314
  7. DEXAMETHASONE [Concomitant]
     Dosage: 5 MG/1 ML, 2/D
     Route: 030
     Dates: start: 20080422, end: 20080422
  8. TRANSAMIN [Concomitant]
     Indication: HAEMOSTASIS
     Dates: start: 20070827

REACTIONS (1)
  - PLEURAL EFFUSION [None]
